FAERS Safety Report 19997904 (Version 2)
Quarter: 2021Q4

REPORT INFORMATION
  Report Type: Report from Study
  Country: AR (occurrence: AR)
  Receive Date: 20211026
  Receipt Date: 20211110
  Transmission Date: 20220304
  Serious: Yes (Other)
  Sender: FDA-Public Use
  Company Number: AR-NOVARTISPH-NVSC2021AR241513

PATIENT
  Age: 70 Year
  Sex: Female

DRUGS (4)
  1. EXFORGE [Suspect]
     Active Substance: AMLODIPINE BESYLATE\VALSARTAN
     Indication: Hypertension
     Dosage: UNK (STARTED IN 1996 APPROXIMATELY)
     Route: 065
  2. EXFORGE [Suspect]
     Active Substance: AMLODIPINE BESYLATE\VALSARTAN
     Dosage: 1 DF, QD (AMLODIPINE:160MG, HYDROCHLORTHIAZIDE:5MG, VALSARTAN:12.5MG)( STARTED APPROX 15 YEARS AGO)
     Route: 065
     Dates: end: 2017
  3. EXFORGE [Suspect]
     Active Substance: AMLODIPINE BESYLATE\VALSARTAN
     Dosage: UNK
     Route: 065
     Dates: start: 202110
  4. ROSUVASTATIN [Concomitant]
     Active Substance: ROSUVASTATIN
     Indication: Product used for unknown indication
     Dosage: UNK
     Route: 065

REACTIONS (8)
  - Lung carcinoma cell type unspecified stage III [Recovering/Resolving]
  - Metastases to lung [Unknown]
  - Swelling [Unknown]
  - Nausea [Unknown]
  - COVID-19 [Recovered/Resolved]
  - Malaise [Unknown]
  - Food intolerance [Unknown]
  - Dysgeusia [Unknown]

NARRATIVE: CASE EVENT DATE: 20210301
